FAERS Safety Report 23459056 (Version 3)
Quarter: 2024Q4

REPORT INFORMATION
  Report Type: Spontaneous
  Country: FR (occurrence: FR)
  Receive Date: 20240131
  Receipt Date: 20241003
  Transmission Date: 20250115
  Serious: Yes (Hospitalization, Other)
  Sender: CELLTRION
  Company Number: FR-CELLTRION INC.-2024FR001988

PATIENT

DRUGS (6)
  1. RITUXIMAB [Suspect]
     Active Substance: RITUXIMAB
     Indication: Lymphoma
     Dosage: NR
     Route: 042
     Dates: start: 20230220
  2. VINCRISTINE SULFATE [Suspect]
     Active Substance: VINCRISTINE SULFATE
     Indication: Lymphoma
     Dosage: UNK (NRTTT C1)
     Route: 042
     Dates: start: 20230220
  3. CYCLOPHOSPHAMIDE [Suspect]
     Active Substance: CYCLOPHOSPHAMIDE
     Indication: Lymphoma
     Dosage: UNK (NRTTT C1)
     Route: 042
     Dates: start: 20230220
  4. DOXORUBICIN [Suspect]
     Active Substance: DOXORUBICIN
     Indication: Lymphoma
     Dosage: UNK (NRTTT C1)
     Route: 042
     Dates: start: 20230220
  5. CIPROFLOXACIN HYDROCHLORIDE\HYDROCORTISONE [Suspect]
     Active Substance: CIPROFLOXACIN HYDROCHLORIDE\HYDROCORTISONE
     Indication: Infection
     Dosage: NR
     Route: 042
     Dates: start: 20230310, end: 20230316
  6. AZACTAM [Suspect]
     Active Substance: AZTREONAM
     Indication: Lymphadenopathy
     Dosage: 3 G (POWDER AND SOLUTION FOR PARENTERAL USE)
     Route: 042
     Dates: start: 20230307, end: 20230310

REACTIONS (4)
  - Pancytopenia [Not Recovered/Not Resolved]
  - Rash [Recovered/Resolved]
  - Acute kidney injury [Not Recovered/Not Resolved]
  - Pruritus [Recovered/Resolved]

NARRATIVE: CASE EVENT DATE: 20230308
